FAERS Safety Report 6025724-4 (Version None)
Quarter: 2008Q4

REPORT INFORMATION
  Report Type: 
  Country: None (occurrence: None)
  Receive Date: 20081231
  Receipt Date: 20081219
  Transmission Date: 20090506
  Serious: Yes (Life-Threatening, Hospitalization, Other)
  Sender: FDA-Public Use
  Company Number: ES-CELGENEUS-144-21880-08111190

PATIENT
  Sex: Female
  Weight: 65 kg

DRUGS (3)
  1. REVLIMID [Suspect]
     Route: 048
     Dates: start: 20070601
  2. ESERTIA [Concomitant]
     Indication: DEPRESSION
     Route: 065
  3. LORAZEPAM [Concomitant]
     Indication: HYPNOTHERAPY
     Route: 065

REACTIONS (1)
  - ATRIOVENTRICULAR BLOCK COMPLETE [None]
